FAERS Safety Report 23262907 (Version 1)
Quarter: 2023Q4

REPORT INFORMATION
  Report Type: Spontaneous
  Country: US (occurrence: None)
  Receive Date: 20231204
  Receipt Date: 20231204
  Transmission Date: 20240110
  Serious: Yes (Hospitalization)
  Sender: FDA-Public Use
  Company Number: None

PATIENT
  Age: 73 Year
  Sex: Male

DRUGS (1)
  1. USTEKINUMAB [Suspect]
     Active Substance: USTEKINUMAB
     Dosage: 90 MG SQ
     Route: 058
     Dates: start: 20160327, end: 20230924

REACTIONS (6)
  - Eosinophilic pneumonia [None]
  - Strongyloides test positive [None]
  - Loeffler^s syndrome [None]
  - Parasitic pneumonia [None]
  - Pneumonia fungal [None]
  - Pneumocystis jirovecii pneumonia [None]

NARRATIVE: CASE EVENT DATE: 20231024
